FAERS Safety Report 6596910-X (Version None)
Quarter: 2010Q1

REPORT INFORMATION
  Report Type: 
  Country: None (occurrence: None)
  Receive Date: 20100212
  Receipt Date: 20100129
  Transmission Date: 20100710
  Serious: Yes (Death)
  Sender: FDA-Public Use
  Company Number: 8053195

PATIENT
  Sex: Male

DRUGS (3)
  1. KEPPRA [Suspect]
     Indication: EPILEPSY
     Dosage: 250 MG, DAILY TRANSPLACENTAL, 750 MG, DAILY TRANSPLACENTAL, 3000 MG, DAILY TRANSPLACENTAL
     Route: 064
     Dates: start: 20080923, end: 20090402
  2. KEPPRA [Suspect]
     Indication: EPILEPSY
     Dosage: 250 MG, DAILY TRANSPLACENTAL, 750 MG, DAILY TRANSPLACENTAL, 3000 MG, DAILY TRANSPLACENTAL
     Route: 064
     Dates: start: 20081010, end: 20090402
  3. KEPPRA [Suspect]
     Indication: EPILEPSY
     Dosage: 250 MG, DAILY TRANSPLACENTAL, 750 MG, DAILY TRANSPLACENTAL, 3000 MG, DAILY TRANSPLACENTAL
     Route: 064
     Dates: start: 20090201, end: 20090402

REACTIONS (20)
  - ASCITES [None]
  - BREECH PRESENTATION [None]
  - CAESAREAN SECTION [None]
  - CARDIOMEGALY [None]
  - CEREBRAL HAEMORRHAGE FOETAL [None]
  - CONGENITAL ANAEMIA [None]
  - CONGENITAL ANOMALY [None]
  - CONGENITAL ORAL MALFORMATION [None]
  - FOETAL CARDIAC DISORDER [None]
  - FOETAL DISORDER [None]
  - FOETAL GROWTH RETARDATION [None]
  - GASTROINTESTINAL DISORDER [None]
  - HAEMOTHORAX [None]
  - MATERNAL DRUGS AFFECTING FOETUS [None]
  - MICROSTOMIA [None]
  - PERICARDIAL EFFUSION [None]
  - PERICARDIAL HAEMORRHAGE [None]
  - PULMONARY HYPOPLASIA [None]
  - PULMONARY MALFORMATION [None]
  - STILLBIRTH [None]
